FAERS Safety Report 24127531 (Version 1)
Quarter: 2024Q3

REPORT INFORMATION
  Report Type: Spontaneous
  Country: US (occurrence: US)
  Receive Date: 20240723
  Receipt Date: 20240723
  Transmission Date: 20241017
  Serious: No
  Sender: SANOFI AVENTIS
  Company Number: US-SA-SAC20240718000065

PATIENT
  Age: 3 Year
  Sex: Male

DRUGS (3)
  1. DUPIXENT [Suspect]
     Active Substance: DUPILUMAB
     Indication: Dermatitis atopic
     Dosage: 200 MG Q4W
     Route: 058
  2. FLUOCINOLONE [Concomitant]
     Active Substance: FLUOCINOLONE
  3. HYDROXYZINE [Concomitant]
     Active Substance: HYDROXYZINE HYDROCHLORIDE

REACTIONS (5)
  - Pruritus [Unknown]
  - Sleep disorder [Unknown]
  - Dry skin [Unknown]
  - Skin weeping [Recovering/Resolving]
  - Therapeutic response shortened [Unknown]
